FAERS Safety Report 6774833-0 (Version None)
Quarter: 2010Q2

REPORT INFORMATION
  Report Type: 
  Country: None (occurrence: None)
  Receive Date: 20100616
  Receipt Date: 20100616
  Transmission Date: 20101027
  Serious: Yes (Other)
  Sender: FDA-Public Use
  Company Number: None

PATIENT
  Age: 69 Year
  Sex: Female
  Weight: 66.6788 kg

DRUGS (1)
  1. BONIVA [Suspect]
     Indication: OSTEOPOROSIS
     Dosage: TWO INJECTIONS EVERY 3 MONTHS IV
     Route: 042
     Dates: start: 20100107

REACTIONS (17)
  - ARTHRALGIA [None]
  - BACK PAIN [None]
  - BLADDER DISCOMFORT [None]
  - DIZZINESS [None]
  - DRUG INTERACTION [None]
  - EPISTAXIS [None]
  - HEADACHE [None]
  - INFLUENZA LIKE ILLNESS [None]
  - MIDDLE INSOMNIA [None]
  - MUSCLE SPASMS [None]
  - MUSCULOSKELETAL PAIN [None]
  - NAUSEA [None]
  - OROPHARYNGEAL PAIN [None]
  - PRURITUS [None]
  - RHINORRHOEA [None]
  - SNEEZING [None]
  - URINARY TRACT INFECTION [None]
